FAERS Safety Report 6551886-6 (Version None)
Quarter: 2010Q1

REPORT INFORMATION
  Report Type: 
  Country: None (occurrence: None)
  Receive Date: 20100126
  Receipt Date: 20090924
  Transmission Date: 20100710
  Serious: Yes (Life-Threatening, Other)
  Sender: FDA-Public Use
  Company Number: CH-SANOFI-AVENTIS-200920850GDDC

PATIENT
  Age: 77 Year
  Sex: Female
  Weight: 73 kg

DRUGS (3)
  1. SOLOSTAR [Suspect]
     Dates: start: 20090201, end: 20090924
  2. LANTUS [Suspect]
     Dosage: DOSE:20 UNIT(S)
     Route: 058
     Dates: start: 20090201, end: 20090924
  3. NOVORAPID [Concomitant]
     Dosage: DOSE AS USED: 8-10 U
     Route: 058
     Dates: start: 20090201

REACTIONS (2)
  - HYPOGLYCAEMIC UNCONSCIOUSNESS [None]
  - PRODUCT QUALITY ISSUE [None]
